FAERS Safety Report 4362647-0 (Version None)
Quarter: 2004Q2

REPORT INFORMATION
  Report Type: 
  Country: None (occurrence: None)
  Receive Date: 20040524
  Receipt Date: 20040512
  Transmission Date: 20050107
  Serious: Yes (Other)
  Sender: FDA-Public Use
  Company Number: BE-JNJFOC-20040502801

PATIENT
  Age: 55 Year
  Sex: Male

DRUGS (1)
  1. PREPULSID [Suspect]
     Route: 049

REACTIONS (1)
  - CYANOSIS [None]
